FAERS Safety Report 16972283 (Version 2)
Quarter: 2021Q3

REPORT INFORMATION
  Report Type: Report from Study
  Country: CA (occurrence: CA)
  Receive Date: 20191029
  Receipt Date: 20210712
  Transmission Date: 20211014
  Serious: Yes (Death, Life-Threatening, Hospitalization, Other)
  Sender: FDA-Public Use
  Company Number: CA-EISAI MEDICAL RESEARCH-EC-2019-052386

PATIENT
  Age: 65 Year
  Sex: Female
  Weight: 50.9 kg

DRUGS (26)
  1. MIDAZOLAM. [Concomitant]
     Active Substance: MIDAZOLAM
  2. IBUPROFEN. [Concomitant]
     Active Substance: IBUPROFEN
  3. TOR ELLIS MOUTHWASH [Concomitant]
  4. LENVATINIB [Suspect]
     Active Substance: LENVATINIB
     Route: 048
     Dates: start: 20190205, end: 20190217
  5. EVEROLIMUS. [Suspect]
     Active Substance: EVEROLIMUS
     Indication: RENAL CELL CARCINOMA
     Route: 048
     Dates: start: 20181019, end: 20181125
  6. ZOPLICLONE [Concomitant]
  7. HYDROMORPHONE [Concomitant]
     Active Substance: HYDROMORPHONE
  8. CIPROFLOXACIN. [Concomitant]
     Active Substance: CIPROFLOXACIN
  9. LENVATINIB [Suspect]
     Active Substance: LENVATINIB
     Indication: RENAL CELL CARCINOMA
     Route: 048
     Dates: start: 20181019, end: 20181125
  10. EVEROLIMUS. [Suspect]
     Active Substance: EVEROLIMUS
     Route: 048
     Dates: start: 20181127, end: 20181206
  11. DEXAMETHASONE. [Concomitant]
     Active Substance: DEXAMETHASONE
  12. FRAGMIN [Concomitant]
     Active Substance: DALTEPARIN SODIUM
     Route: 042
  13. SENOKOT [Concomitant]
     Active Substance: SENNOSIDES
  14. PANTOPRAZOLE [Concomitant]
     Active Substance: PANTOPRAZOLE
  15. EVEROLIMUS. [Suspect]
     Active Substance: EVEROLIMUS
     Route: 048
     Dates: start: 20190121, end: 20190204
  16. LENVATINIB [Suspect]
     Active Substance: LENVATINIB
     Route: 048
     Dates: start: 20181213, end: 20190108
  17. EVEROLIMUS. [Suspect]
     Active Substance: EVEROLIMUS
     Route: 048
     Dates: start: 20181213, end: 20190108
  18. EVEROLIMUS. [Suspect]
     Active Substance: EVEROLIMUS
     Route: 048
     Dates: start: 20190205, end: 20190217
  19. HALOPERIDOL. [Concomitant]
     Active Substance: HALOPERIDOL
  20. DULOXETINE. [Concomitant]
     Active Substance: DULOXETINE
  21. POLYSPORIN [Concomitant]
     Active Substance: BACITRACIN ZINC\POLYMYXIN B SULFATE
  22. DULCOLAX NOS [Concomitant]
     Active Substance: BISACODYL OR DOCUSATE SODIUM
  23. ACETAMINOPHEN. [Concomitant]
     Active Substance: ACETAMINOPHEN
  24. LENVATINIB [Suspect]
     Active Substance: LENVATINIB
     Route: 048
     Dates: start: 20181127, end: 20181206
  25. LENVATINIB [Suspect]
     Active Substance: LENVATINIB
     Route: 048
     Dates: start: 20190121, end: 20190204
  26. VITAMIN D [Concomitant]
     Active Substance: VITAMIN D NOS

REACTIONS (4)
  - Respiratory failure [Fatal]
  - Pain [Not Recovered/Not Resolved]
  - Pneumothorax [Not Recovered/Not Resolved]
  - Thrombocytopenia [Not Recovered/Not Resolved]

NARRATIVE: CASE EVENT DATE: 20190217
